FAERS Safety Report 5338979-6 (Version None)
Quarter: 2007Q2

REPORT INFORMATION
  Report Type: 
  Country: None (occurrence: None)
  Receive Date: 20070530
  Receipt Date: 20070515
  Transmission Date: 20071010
  Serious: Yes (Hospitalization, Other)
  Sender: FDA-Public Use
  Company Number: US-PFIZER INC-2006127478

PATIENT
  Sex: Male

DRUGS (3)
  1. CELEBREX [Suspect]
     Indication: BACK PAIN
  2. BEXTRA [Suspect]
     Indication: BACK PAIN
     Route: 048
  3. VIOXX [Suspect]
     Indication: BACK INJURY
     Route: 048
     Dates: start: 20040101

REACTIONS (2)
  - CARDIAC DISORDER [None]
  - MYOCARDIAL INFARCTION [None]
